FAERS Safety Report 4442998-1 (Version None)
Quarter: 2004Q3

REPORT INFORMATION
  Report Type: 
  Country: None (occurrence: None)
  Receive Date: 20040907
  Receipt Date: 20040813
  Transmission Date: 20050211
  Serious: Yes (Death, Other)
  Sender: FDA-Public Use
  Company Number: A-US2004-07130

PATIENT
  Age: 80 Year
  Sex: Female
  Weight: 70.3 kg

DRUGS (7)
  1. TRACLEER [Suspect]
     Dosage: 62.5 MG, BID, ORAL
     Route: 048
     Dates: start: 20020605, end: 20020731
  2. COZAAR [Concomitant]
  3. ALLEGRA [Concomitant]
  4. SALMETEROL (SALMETEROL) [Concomitant]
  5. GLUCOTROL [Concomitant]
  6. ATENOLOL [Concomitant]
  7. VIOXX [Concomitant]

REACTIONS (5)
  - ALANINE AMINOTRANSFERASE INCREASED [None]
  - ASPARTATE AMINOTRANSFERASE INCREASED [None]
  - CARDIAC FAILURE CONGESTIVE [None]
  - DISEASE PROGRESSION [None]
  - RIGHT VENTRICULAR FAILURE [None]
